FAERS Safety Report 8666072 (Version 5)
Quarter: 2012Q4

REPORT INFORMATION
  Report Type: 
  Country: IE (occurrence: IE)
  Receive Date: 20120716
  Receipt Date: 20120912
  Transmission Date: 20130627
  Serious: Yes (Hospitalization)
  Sender: FDA-Public Use
  Company Number: PHFR2012IE003953

PATIENT
  Age: 78 Year
  Sex: Female

DRUGS (1)
  1. CLOZARIL [Suspect]
     Indication: SCHIZOPHRENIA
     Route: 048
     Dates: start: 20100412

REACTIONS (5)
  - Breast cancer recurrent [Recovering/Resolving]
  - Sepsis [Unknown]
  - Schizophrenia [Unknown]
  - White blood cell count increased [Unknown]
  - Neutrophil count increased [Unknown]
